FAERS Safety Report 6608265-2 (Version None)
Quarter: 2010Q1

REPORT INFORMATION
  Report Type: 
  Country: None (occurrence: None)
  Receive Date: 20100301
  Receipt Date: 20100219
  Transmission Date: 20100710
  Serious: Yes (Other)
  Sender: FDA-Public Use
  Company Number: TW-ROCHE-686285

PATIENT
  Sex: Female

DRUGS (4)
  1. TRASTUZUMAB [Suspect]
     Indication: BREAST CANCER
     Route: 042
     Dates: start: 20090226
  2. TRASTUZUMAB [Suspect]
     Dosage: DOSE REDUCED.
     Route: 042
  3. PACLITAXEL [Suspect]
     Indication: BREAST CANCER
     Route: 042
     Dates: start: 20090226
  4. PACLITAXEL [Suspect]
     Dosage: DOSE REDUCED.
     Route: 042

REACTIONS (1)
  - ALANINE AMINOTRANSFERASE INCREASED [None]
